FAERS Safety Report 15206296 (Version 1)
Quarter: 2018Q3

REPORT INFORMATION
  Report Type: Spontaneous
  Country: DE (occurrence: DE)
  Receive Date: 20180727
  Receipt Date: 20180727
  Transmission Date: 20181010
  Serious: Yes (Hospitalization, Other)
  Sender: FDA-Public Use
  Company Number: DE-TEVA-2018-DE-930108

PATIENT
  Age: 76 Year
  Sex: Female
  Weight: 71 kg

DRUGS (1)
  1. IBUPROFEN 400 [Suspect]
     Active Substance: IBUPROFEN
     Indication: MUSCULOSKELETAL DISCOMFORT
     Dosage: 1 X BEFORE BEDTIME
     Dates: start: 20180617, end: 20180618

REACTIONS (5)
  - Oedema peripheral [Unknown]
  - Rash [Unknown]
  - Pruritus [Unknown]
  - Swollen tongue [Recovering/Resolving]
  - Respiratory distress [Unknown]

NARRATIVE: CASE EVENT DATE: 20180618
